FAERS Safety Report 4638058-7 (Version None)
Quarter: 2005Q2

REPORT INFORMATION
  Report Type: 
  Country: None (occurrence: None)
  Receive Date: 20050415
  Receipt Date: 20050328
  Transmission Date: 20051028
  Serious: Yes (Death, Other)
  Sender: FDA-Public Use
  Company Number: USA050392540

PATIENT
  Age: 32 Year
  Sex: Female
  Weight: 77 kg

DRUGS (8)
  1. XIGRIS [Suspect]
     Indication: SEPSIS
     Dosage: 24 UG/KG, HR
     Dates: start: 20050306, end: 20050309
  2. LEVOPHED [Concomitant]
  3. VASOPRESSIN INJECTION [Concomitant]
  4. DIPRIVAN [Concomitant]
  5. CLEOCIN [Concomitant]
  6. VANCOMYCIN [Concomitant]
  7. LEVAQUIN [Concomitant]
  8. GENTAMICIN [Concomitant]

REACTIONS (13)
  - ALANINE AMINOTRANSFERASE INCREASED [None]
  - ASPARTATE AMINOTRANSFERASE INCREASED [None]
  - BLOOD ALKALINE PHOSPHATASE INCREASED [None]
  - BLOOD BILIRUBIN INCREASED [None]
  - BLOOD CREATINE PHOSPHOKINASE INCREASED [None]
  - BLOOD CREATININE INCREASED [None]
  - BLOOD LACTATE DEHYDROGENASE INCREASED [None]
  - COAGULOPATHY [None]
  - FASCIITIS [None]
  - HAEMORRHAGE [None]
  - INTERNATIONAL NORMALISED RATIO INCREASED [None]
  - PLATELET COUNT DECREASED [None]
  - RESPIRATORY MONILIASIS [None]
